FAERS Safety Report 15802119 (Version 3)
Quarter: 2023Q4

REPORT INFORMATION
  Report Type: Spontaneous
  Country: US (occurrence: None)
  Receive Date: 20190109
  Receipt Date: 20231008
  Transmission Date: 20240110
  Serious: Yes (Hospitalization, Other)
  Sender: FDA-Public Use
  Company Number: 2019SE00971

PATIENT
  Age: 22117 Day
  Sex: Female

DRUGS (55)
  1. PRILOSEC OTC [Suspect]
     Active Substance: OMEPRAZOLE MAGNESIUM
     Indication: Gastrooesophageal reflux disease
     Route: 048
     Dates: start: 2003, end: 2017
  2. PRILOSEC OTC [Suspect]
     Active Substance: OMEPRAZOLE MAGNESIUM
     Indication: Gastrooesophageal reflux disease
     Route: 048
     Dates: start: 2003, end: 2014
  3. PRILOSEC OTC [Suspect]
     Active Substance: OMEPRAZOLE MAGNESIUM
     Indication: Gastrooesophageal reflux disease
     Route: 048
     Dates: start: 2013, end: 2017
  4. PRILOSEC [Suspect]
     Active Substance: OMEPRAZOLE MAGNESIUM
     Indication: Gastrooesophageal reflux disease
     Route: 048
     Dates: start: 20170118
  5. PRILOSEC [Suspect]
     Active Substance: OMEPRAZOLE MAGNESIUM
     Indication: Gastrooesophageal reflux disease
     Dosage: GENERIC
     Dates: start: 201409, end: 201801
  6. PRILOSEC [Suspect]
     Active Substance: OMEPRAZOLE MAGNESIUM
     Indication: Gastrooesophageal reflux disease
     Dosage: GENERIC20.0MG UNKNOWN
     Route: 048
     Dates: start: 20140930
  7. PROTONIX [Suspect]
     Active Substance: PANTOPRAZOLE SODIUM
     Indication: Gastrooesophageal reflux disease
     Route: 048
     Dates: start: 20160913
  8. PROTONIX [Suspect]
     Active Substance: PANTOPRAZOLE SODIUM
     Indication: Gastrooesophageal reflux disease
     Dosage: GENERIC
     Dates: start: 201701
  9. ZOLPIDEM [Concomitant]
     Active Substance: ZOLPIDEM TARTRATE
     Indication: Sleep disorder
     Dates: start: 200909, end: 201001
  10. DIOVAN [Concomitant]
     Active Substance: VALSARTAN
     Indication: Blood pressure measurement
     Dates: start: 200912, end: 201602
  11. METHYLPREDNISOLONE [Concomitant]
     Active Substance: METHYLPREDNISOLONE
     Indication: Steroid therapy
     Dates: start: 201009, end: 201709
  12. COMBIVENT [Concomitant]
     Active Substance: ALBUTEROL SULFATE\IPRATROPIUM BROMIDE
     Indication: Inhalation therapy
     Dates: start: 201012, end: 201412
  13. CRESTOR [Concomitant]
     Active Substance: ROSUVASTATIN CALCIUM
     Indication: Blood cholesterol
     Dates: start: 201209, end: 201307
  14. CLONAZEPAM [Concomitant]
     Active Substance: CLONAZEPAM
     Indication: Anxiety
     Dates: start: 201212, end: 201710
  15. VITAMIN D [Concomitant]
     Active Substance: VITAMIN D NOS
     Indication: Nutritional supplementation
     Dates: start: 201212, end: 201710
  16. SPIRIVA [Concomitant]
     Active Substance: TIOTROPIUM BROMIDE MONOHYDRATE
     Indication: Inhalation therapy
     Dates: start: 201304, end: 201401
  17. PHENTERMINE [Concomitant]
     Active Substance: PHENTERMINE
     Indication: Decreased appetite
     Dates: start: 201305
  18. TOPIRAMATE [Concomitant]
     Active Substance: TOPIRAMATE
     Indication: Partial seizures
     Dates: start: 201305
  19. BC (ASPIRIN\CAFFEINE) [Concomitant]
     Active Substance: ASPIRIN\CAFFEINE
     Indication: Pain
  20. CEPHALEXIN [Concomitant]
     Active Substance: CEPHALEXIN
  21. ACETAMINOPHEN\HYDROCODONE BITARTRATE [Concomitant]
     Active Substance: ACETAMINOPHEN\HYDROCODONE BITARTRATE
  22. IBUPROFEN/HYDROCODONE BITARTRATE [Concomitant]
  23. AMOXICILLIN [Concomitant]
     Active Substance: AMOXICILLIN
  24. CLINDAMYCIN [Concomitant]
     Active Substance: CLINDAMYCIN
  25. TAMIFLU [Concomitant]
     Active Substance: OSELTAMIVIR PHOSPHATE
  26. FLUCONAZOLE [Concomitant]
     Active Substance: FLUCONAZOLE
  27. AMOXICILLIN\CLAVULANATE POTASSIUM [Concomitant]
     Active Substance: AMOXICILLIN\CLAVULANATE POTASSIUM
  28. MUPIROCIN [Concomitant]
     Active Substance: MUPIROCIN
  29. AZITHROMYCIN [Concomitant]
     Active Substance: AZITHROMYCIN
  30. BENZONATATE [Concomitant]
     Active Substance: BENZONATATE
  31. PREDNISONE [Concomitant]
     Active Substance: PREDNISONE
  32. MOVIPREP [Concomitant]
     Active Substance: ASCORBIC ACID\POLYETHYLENE GLYCOL 3350\POTASSIUM CHLORIDE\SODIUM ASCORBATE\SODIUM CHLORIDE\SODIUM SU
  33. ALENDRONATE [Concomitant]
     Active Substance: ALENDRONATE SODIUM
  34. ATORVASTATIN [Concomitant]
     Active Substance: ATORVASTATIN
  35. LEVOFLOXACIN [Concomitant]
     Active Substance: LEVOFLOXACIN
  36. METOPROLOL TARTRATE [Concomitant]
     Active Substance: METOPROLOL TARTRATE
  37. FLUTICASONE [Concomitant]
     Active Substance: FLUTICASONE
  38. CARVEDILOL [Concomitant]
     Active Substance: CARVEDILOL
  39. CODEINE/GG [Concomitant]
  40. PROAIR HFA [Concomitant]
     Active Substance: ALBUTEROL SULFATE
  41. NITROGLYCER [Concomitant]
  42. ALBUTEROL [Concomitant]
     Active Substance: ALBUTEROL
  43. SIMVASTATIN [Concomitant]
     Active Substance: SIMVASTATIN
  44. BENADRYL [Concomitant]
     Active Substance: DIPHENHYDRAMINE HYDROCHLORIDE
  45. FLUTICASONE PROPIONATE\SALMETEROL XINAFOATE [Concomitant]
     Active Substance: FLUTICASONE PROPIONATE\SALMETEROL XINAFOATE
  46. ASPIRIN\CAFFEINE [Concomitant]
     Active Substance: ASPIRIN\CAFFEINE
  47. HYDROCHLOROTHIAZIDE\VALSARTAN [Concomitant]
     Active Substance: HYDROCHLOROTHIAZIDE\VALSARTAN
  48. ASPIRIN [Concomitant]
     Active Substance: ASPIRIN
  49. ANCEF [Concomitant]
     Active Substance: CEFAZOLIN SODIUM
  50. HEPARIN [Concomitant]
     Active Substance: HEPARIN SODIUM
  51. ANGIOMAX [Concomitant]
     Active Substance: BIVALIRUDIN
  52. FENTANYL [Concomitant]
     Active Substance: FENTANYL
  53. NICOTINE [Concomitant]
     Active Substance: NICOTINE
  54. TIOTROPIUM [Concomitant]
     Active Substance: TIOTROPIUM
  55. BUMEX [Concomitant]
     Active Substance: BUMETANIDE

REACTIONS (4)
  - Chronic kidney disease [Unknown]
  - Acute kidney injury [Unknown]
  - Renal failure [Unknown]
  - Renal hypertension [Unknown]

NARRATIVE: CASE EVENT DATE: 20150118
